FAERS Safety Report 14378411 (Version 1)
Quarter: 2018Q1

REPORT INFORMATION
  Report Type: Report from Study
  Country: None (occurrence: US)
  Receive Date: 20180111
  Receipt Date: 20180111
  Transmission Date: 20180509
  Serious: Yes (Hospitalization, Other)
  Sender: FDA-Public Use
  Company Number: US-ABBVIE-18P-163-2212376-00

PATIENT
  Sex: Male
  Weight: 74.91 kg

DRUGS (1)
  1. DEPAKOTE ER [Suspect]
     Active Substance: DIVALPROEX SODIUM
     Indication: EPILEPSY
     Route: 048

REACTIONS (8)
  - Intervertebral disc protrusion [Not Recovered/Not Resolved]
  - Spinal column stenosis [Not Recovered/Not Resolved]
  - Thyroid mass [Not Recovered/Not Resolved]
  - Back pain [Not Recovered/Not Resolved]
  - Surgery [Unknown]
  - Stress [Not Recovered/Not Resolved]
  - Road traffic accident [Recovered/Resolved]
  - Generalised tonic-clonic seizure [Recovered/Resolved]

NARRATIVE: CASE EVENT DATE: 2015
